FAERS Safety Report 23581461 (Version 2)
Quarter: 2024Q1

REPORT INFORMATION
  Report Type: Report from Study
  Country: MX (occurrence: MX)
  Receive Date: 20240229
  Receipt Date: 20240312
  Transmission Date: 20240410
  Serious: Yes (Hospitalization, Other)
  Sender: FDA-Public Use
  Company Number: MX-002147023-NVSC2024MX040384

PATIENT
  Sex: Male
  Weight: 94 kg

DRUGS (2)
  1. TASIGNA [Suspect]
     Active Substance: NILOTINIB
     Indication: Chronic myeloid leukaemia
     Dosage: 1 DOSAGE FORM, BID (800 MG)
     Route: 048
     Dates: start: 201804
  2. TASIGNA [Suspect]
     Active Substance: NILOTINIB
     Dosage: 2 X 200  MG , Q12H
     Route: 048
     Dates: start: 2019

REACTIONS (14)
  - Decreased immune responsiveness [Unknown]
  - Respiratory failure [Not Recovered/Not Resolved]
  - Diplegia [Recovered/Resolved]
  - Exophthalmos [Recovered/Resolved]
  - Thyroiditis [Recovered/Resolved]
  - Cardiac failure [Not Recovered/Not Resolved]
  - Cardiac disorder [Not Recovered/Not Resolved]
  - Dyspepsia [Not Recovered/Not Resolved]
  - COVID-19 [Recovered/Resolved]
  - Gingival disorder [Recovered/Resolved]
  - Diarrhoea [Not Recovered/Not Resolved]
  - Eye swelling [Recovered/Resolved]
  - Malaise [Unknown]
  - Cytogenetic analysis abnormal [Unknown]

NARRATIVE: CASE EVENT DATE: 20210101
